FAERS Safety Report 6248517-1 (Version None)
Quarter: 2009Q2

REPORT INFORMATION
  Report Type: 
  Country: None (occurrence: None)
  Receive Date: 20090629
  Receipt Date: 20090615
  Transmission Date: 20091009
  Serious: Yes (Hospitalization)
  Sender: FDA-Public Use
  Company Number: US-BRISTOL-MYERS SQUIBB COMPANY-14663777

PATIENT
  Age: 62 Year
  Sex: Male

DRUGS (5)
  1. BRIVANIB ALANINATE [Suspect]
     Indication: SQUAMOUS CELL CARCINOMA
     Route: 048
     Dates: start: 20090521
  2. IXABEPILONE [Suspect]
     Indication: SQUAMOUS CELL CARCINOMA
     Route: 042
     Dates: start: 20090611, end: 20090611
  3. OXYCODONE HCL [Concomitant]
     Dates: start: 20071001
  4. LORAZEPAM [Concomitant]
     Dates: start: 20070601
  5. LYRICA [Concomitant]
     Dates: start: 20071001

REACTIONS (1)
  - CEREBROVASCULAR ACCIDENT [None]
